FAERS Safety Report 6712939-2 (Version None)
Quarter: 2010Q2

REPORT INFORMATION
  Report Type: 
  Country: None (occurrence: None)
  Receive Date: 20100505
  Receipt Date: 20100505
  Transmission Date: 20101027
  Serious: Yes (Other)
  Sender: FDA-Public Use
  Company Number: None

PATIENT
  Age: 62 Year
  Sex: Female
  Weight: 74.8435 kg

DRUGS (2)
  1. BOTOX [Suspect]
     Indication: SKIN COSMETIC PROCEDURE
     Dosage: 1CC OCT 2009 2CC MARCH 2010
     Dates: start: 20091018, end: 20100301
  2. BOTOX [Suspect]
     Indication: SKIN COSMETIC PROCEDURE
     Dosage: 1CC OCT 2009 2CC MARCH 2010
     Dates: start: 20100301, end: 20100301

REACTIONS (1)
  - DIPLOPIA [None]
